FAERS Safety Report 18730140 (Version 1)
Quarter: 2021Q1

REPORT INFORMATION
  Report Type: Spontaneous
  Country: RU (occurrence: RU)
  Receive Date: 20210112
  Receipt Date: 20210112
  Transmission Date: 20210419
  Serious: Yes (Other)
  Sender: FDA-Public Use
  Company Number: RU-BAYER-2021-019990

PATIENT
  Age: 38 Year
  Sex: Female

DRUGS (1)
  1. BILTRICID [Suspect]
     Active Substance: PRAZIQUANTEL
     Indication: OPISTHORCHIASIS
     Dosage: 600 MG, TID
     Route: 048
     Dates: start: 202001, end: 202001

REACTIONS (1)
  - Hallucination [Recovered/Resolved]
